FAERS Safety Report 6504474-1 (Version None)
Quarter: 2009Q4

REPORT INFORMATION
  Report Type: 
  Country: None (occurrence: None)
  Receive Date: 20091217
  Receipt Date: 20091209
  Transmission Date: 20100525
  Serious: Yes (Other)
  Sender: FDA-Public Use
  Company Number: US-AMGEN-QUU379137

PATIENT
  Sex: Female

DRUGS (4)
  1. ARANESP [Suspect]
     Indication: RENAL FAILURE CHRONIC
     Route: 065
     Dates: start: 20081101
  2. IMURAN [Concomitant]
  3. PREDNISONE [Concomitant]
  4. PROGRAF [Concomitant]

REACTIONS (1)
  - THERAPEUTIC RESPONSE DECREASED [None]
